FAERS Safety Report 18074201 (Version 1)
Quarter: 2020Q3

REPORT INFORMATION
  Report Type: Spontaneous
  Country: US (occurrence: US)
  Receive Date: 20200727
  Receipt Date: 20200727
  Transmission Date: 20201103
  Serious: Yes (Other)
  Sender: FDA-Public Use
  Company Number: US-CELGENEUS-USA-20200706030

PATIENT
  Age: 85 Year
  Sex: Female

DRUGS (3)
  1. VELCADE [Concomitant]
     Active Substance: BORTEZOMIB
     Indication: PRODUCT USED FOR UNKNOWN INDICATION
     Route: 065
  2. DECADRON [Concomitant]
     Active Substance: DEXAMETHASONE
     Indication: PRODUCT USED FOR UNKNOWN INDICATION
     Route: 065
  3. REVLIMID [Suspect]
     Active Substance: LENALIDOMIDE
     Indication: PLASMA CELL MYELOMA
     Dosage: 25 MILLIGRAM
     Route: 048
     Dates: start: 202007

REACTIONS (8)
  - Somnolence [Unknown]
  - Headache [Unknown]
  - Neutropenia [Unknown]
  - Atrial fibrillation [Unknown]
  - Fatigue [Unknown]
  - Insomnia [Unknown]
  - Thrombocytopenia [Unknown]
  - Haematochezia [Unknown]

NARRATIVE: CASE EVENT DATE: 202007
